FAERS Safety Report 9272858 (Version 3)
Quarter: 2013Q4

REPORT INFORMATION
  Report Type: Report from Study
  Country: FR (occurrence: FR)
  Receive Date: 20130506
  Receipt Date: 20131210
  Transmission Date: 20140711
  Serious: Yes (Hospitalization)
  Sender: FDA-Public Use
  Company Number: PHHY2013FR044341

PATIENT
  Age: 12 Year
  Sex: Male
  Weight: 92 kg

DRUGS (1)
  1. ACZ885 [Suspect]
     Indication: MUCKLE-WELLS SYNDROME
     Dosage: UNK
     Dates: start: 201009, end: 20120301

REACTIONS (3)
  - Appendicitis [Recovered/Resolved]
  - Peritonitis [Recovered/Resolved]
  - Inappropriate schedule of drug administration [Unknown]
